FAERS Safety Report 6469355-0 (Version None)
Quarter: 2009Q4

REPORT INFORMATION
  Report Type: 
  Country: None (occurrence: None)
  Receive Date: 20091203
  Receipt Date: 20080220
  Transmission Date: 20100525
  Serious: Yes (Hospitalization)
  Sender: FDA-Public Use
  Company Number: US-ELI_LILLY_AND_COMPANY-US200710001176

PATIENT
  Sex: Male
  Weight: 82.993 kg

DRUGS (15)
  1. BYETTA [Suspect]
     Indication: TYPE 2 DIABETES MELLITUS
     Dosage: 5 UG, 2/D
     Route: 058
     Dates: start: 20070808, end: 20070905
  2. BYETTA [Suspect]
     Dosage: 10 UG, 2/D
     Route: 058
     Dates: start: 20070906, end: 20070906
  3. BYETTA [Suspect]
     Dosage: UNK, UNKNOWN
     Route: 065
     Dates: start: 20070901, end: 20070918
  4. GLYBURIDE [Concomitant]
     Indication: TYPE 2 DIABETES MELLITUS
     Dosage: 10 MG, 2/D
     Route: 048
     Dates: end: 20071010
  5. CAPTOPRIL [Concomitant]
     Indication: HYPERTENSION
     Dosage: 0.5 MG, 3/D
     Route: 048
  6. PROTONIX [Concomitant]
     Indication: FLATULENCE
     Dosage: 40 MG, DAILY (1/D)
     Route: 048
  7. HYTRIN [Concomitant]
     Indication: PROPHYLAXIS
     Dosage: 5 MG, DAILY (1/D)
     Route: 048
  8. AVODART [Concomitant]
     Indication: PROPHYLAXIS
     Dosage: 0.5 MG, DAILY (1/D)
     Route: 048
  9. HYDROCHLOROTHIAZIDE [Concomitant]
     Indication: FLUID RETENTION
     Dosage: 25 MG, DAILY (1/D)
     Route: 048
     Dates: end: 20070906
  10. HYDROCHLOROTHIAZIDE [Concomitant]
     Dosage: 25 MG, DAILY (1/D)
     Route: 048
     Dates: start: 20070901
  11. ALLEGRA [Concomitant]
     Indication: SEASONAL ALLERGY
     Dosage: UNK, DAILY (1/D)
     Route: 048
     Dates: end: 20070906
  12. ALLEGRA [Concomitant]
     Dosage: UNK, DAILY (1/D)
     Route: 048
     Dates: start: 20070901
  13. CELEBREX [Concomitant]
     Indication: ARTHRALGIA
     Dosage: 200 MG, DAILY (1/D)
     Route: 048
     Dates: start: 20070101
  14. LIBRAX [Concomitant]
     Dosage: 5 MG, UNK
  15. ATIVAN [Concomitant]
     Indication: ANXIETY
     Dosage: 1 MG, 3/D

REACTIONS (15)
  - ASTHENIA [None]
  - CHEST PAIN [None]
  - CHILLS [None]
  - CONFUSIONAL STATE [None]
  - DIVERTICULITIS [None]
  - DYSPNOEA [None]
  - FEELING JITTERY [None]
  - GAIT DISTURBANCE [None]
  - LIMB DISCOMFORT [None]
  - NOCTURIA [None]
  - OEDEMA PERIPHERAL [None]
  - PALLOR [None]
  - RECTAL HAEMORRHAGE [None]
  - RHEUMATOID ARTHRITIS [None]
  - WEIGHT DECREASED [None]
